FAERS Safety Report 12701576 (Version 1)
Quarter: 2016Q3

REPORT INFORMATION
  Report Type: Spontaneous
  Country: US (occurrence: US)
  Receive Date: 20160831
  Receipt Date: 20160831
  Transmission Date: 20161109
  Serious: No
  Sender: FDA-Public Use
  Company Number: US-TEVA-678415USA

PATIENT
  Age: 55 Year
  Sex: Female

DRUGS (19)
  1. LETROZOLE. [Concomitant]
     Active Substance: LETROZOLE
  2. CARAFATE [Concomitant]
     Active Substance: SUCRALFATE
  3. CYMBALTA [Concomitant]
     Active Substance: DULOXETINE HYDROCHLORIDE
  4. LORAZEPAM. [Concomitant]
     Active Substance: LORAZEPAM
  5. FLUOXETINE [Concomitant]
     Active Substance: FLUOXETINE HYDROCHLORIDE
  6. ARICEPT [Concomitant]
     Active Substance: DONEPEZIL HYDROCHLORIDE
  7. NUVIGIL [Concomitant]
     Active Substance: ARMODAFINIL
  8. VITAMIN D [Concomitant]
     Active Substance: CHOLECALCIFEROL
  9. PROMETRIUM [Concomitant]
     Active Substance: PROGESTERONE
  10. TOPIRAMATE. [Concomitant]
     Active Substance: TOPIRAMATE
  11. GABAPENTIN. [Concomitant]
     Active Substance: GABAPENTIN
  12. ZANTAC [Concomitant]
     Active Substance: RANITIDINE HYDROCHLORIDE
  13. PREDNISOLONE. [Concomitant]
     Active Substance: PREDNISOLONE
  14. XANAX [Concomitant]
     Active Substance: ALPRAZOLAM
  15. COPAXONE [Suspect]
     Active Substance: GLATIRAMER ACETATE
     Indication: MULTIPLE SCLEROSIS
     Dosage: 20 MILLIGRAM DAILY;
     Route: 058
     Dates: start: 200909
  16. NEXIUM [Concomitant]
     Active Substance: ESOMEPRAZOLE MAGNESIUM
  17. GLUCOSAMINE [Concomitant]
     Active Substance: GLUCOSAMINE
  18. PROZAC [Concomitant]
     Active Substance: FLUOXETINE HYDROCHLORIDE
  19. EXEMESTANE. [Concomitant]
     Active Substance: EXEMESTANE

REACTIONS (2)
  - Drug dose omission [Unknown]
  - Memory impairment [Unknown]

NARRATIVE: CASE EVENT DATE: 201606
